FAERS Safety Report 16774630 (Version 1)
Quarter: 2019Q3

REPORT INFORMATION
  Report Type: Report from Study
  Country: CA (occurrence: CA)
  Receive Date: 20190905
  Receipt Date: 20190905
  Transmission Date: 20191005
  Serious: Yes (Other)
  Sender: FDA-Public Use
  Company Number: CA-ROCHE-2393971

PATIENT

DRUGS (3)
  1. BLINDED BROMAZEPAM [Suspect]
     Active Substance: BROMAZEPAM
     Indication: GENERALISED ANXIETY DISORDER
     Dosage: (6 MG A.M., 6 MG HS)
     Route: 048
  2. BLINDED BROMAZEPAM [Suspect]
     Active Substance: BROMAZEPAM
     Dosage: (6 MG A.M., 6 MG P.M., 6 MG HS),
     Route: 048
  3. DIAZEPAM. [Suspect]
     Active Substance: DIAZEPAM
     Indication: GENERALISED ANXIETY DISORDER
     Route: 065

REACTIONS (2)
  - Depression [Unknown]
  - Suicidal ideation [Unknown]
